FAERS Safety Report 9397800 (Version 1)
Quarter: 2013Q3

REPORT INFORMATION
  Report Type: Spontaneous
  Country: US (occurrence: None)
  Receive Date: 20130711
  Receipt Date: 20130711
  Transmission Date: 20140515
  Serious: Yes (Hospitalization)
  Sender: FDA-Public Use
  Company Number: None

PATIENT
  Age: 52 Year
  Sex: Female
  Weight: 64.3 kg

DRUGS (2)
  1. IRINOTECAN [Suspect]
  2. CETUXIMAB [Suspect]

REACTIONS (1)
  - Neutrophil count abnormal [None]
